FAERS Safety Report 4573687-0 (Version None)
Quarter: 2005Q1

REPORT INFORMATION
  Report Type: 
  Country: None (occurrence: None)
  Receive Date: 20050203
  Receipt Date: 20050124
  Transmission Date: 20050727
  Serious: Yes (Other)
  Sender: FDA-Public Use
  Company Number: 2005US000134

PATIENT
  Age: 50 Year
  Sex: Female

DRUGS (4)
  1. PROGRAF [Suspect]
     Indication: PROPHYLAXIS AGAINST TRANSPLANT REJECTION
  2. PEGYLATED INTERFERON ALPHA 2B [Suspect]
     Indication: HEPATITIS C VIRUS
  3. RAPAMYCIN (SIROLIMUS) [Concomitant]
  4. PREDNISONE [Concomitant]

REACTIONS (3)
  - APLASIA PURE RED CELL [None]
  - HEPATITIS C [None]
  - LIVER TRANSPLANT REJECTION [None]
